FAERS Safety Report 6188027-3 (Version None)
Quarter: 2009Q2

REPORT INFORMATION
  Report Type: 
  Country: None (occurrence: None)
  Receive Date: 20090513
  Receipt Date: 20090505
  Transmission Date: 20091009
  Serious: Yes (Other)
  Sender: FDA-Public Use
  Company Number: PHHY2009FR17209

PATIENT
  Age: 30 Year
  Sex: Female

DRUGS (1)
  1. EXJADE [Suspect]
     Indication: ERYTHROPOIESIS ABNORMAL
     Dosage: UNK

REACTIONS (2)
  - CARDIAC FAILURE [None]
  - HEART TRANSPLANT [None]
